FAERS Safety Report 8507003-6 (Version None)
Quarter: 2012Q2

REPORT INFORMATION
  Report Type: 
  Country: None (occurrence: None)
  Receive Date: 20120628
  Receipt Date: 20120612
  Transmission Date: 20120825
  Serious: No
  Sender: FDA-Public Use
  Company Number: DE-ALCON-1192872

PATIENT

DRUGS (2)
  1. TRIESENCE [Suspect]
     Indication: AGE-RELATED MACULAR DEGENERATION
     Dosage: INTRAOCULAR
     Route: 031
  2. BEVACIZUMAB: / BEVACIZUAMB [Suspect]
     Indication: AGE-RELATED MACULAR DEGENERATION
     Dosage: INTRAOCULAR
     Route: 031

REACTIONS (3)
  - CONDITION AGGRAVATED [None]
  - CATARACT NUCLEAR [None]
  - OFF LABEL USE [None]
